FAERS Safety Report 9507100 (Version 1)
Quarter: 2013Q1

REPORT INFORMATION
  Report Type: Spontaneous
  Country: US (occurrence: None)
  Receive Date: 20130305
  Receipt Date: 20130305
  Transmission Date: 20140127
  Serious: Yes (Life-Threatening)
  Sender: FDA-Public Use
  Company Number: 163-21880-12050680

PATIENT
  Age: 9 Year
  Sex: Male

DRUGS (1)
  1. REVLIMID [Suspect]
     Indication: BRAIN NEOPLASM MALIGNANT
     Route: 048
     Dates: start: 20120322, end: 20120411

REACTIONS (1)
  - Platelet count decreased [None]
